FAERS Safety Report 7861885-X (Version None)
Quarter: 2011Q4

REPORT INFORMATION
  Report Type: 
  Country: None (occurrence: None)
  Receive Date: 20111027
  Receipt Date: 20101117
  Transmission Date: 20120403
  Serious: No
  Sender: FDA-Public Use
  Company Number: US-AMGEN-USASP2010005528

PATIENT
  Age: 15 Year
  Sex: Female

DRUGS (1)
  1. ENBREL [Suspect]
     Indication: JUVENILE ARTHRITIS
     Dosage: 50 MG, QWK
     Dates: start: 20080701

REACTIONS (5)
  - WOUND INFECTION STAPHYLOCOCCAL [None]
  - FURUNCLE [None]
  - SWELLING FACE [None]
  - FACIAL PAIN [None]
  - JUVENILE ARTHRITIS [None]
